FAERS Safety Report 24737252 (Version 1)
Quarter: 2024Q4

REPORT INFORMATION
  Report Type: Report from Study
  Country: US (occurrence: US)
  Receive Date: 20241216
  Receipt Date: 20241216
  Transmission Date: 20250114
  Serious: Yes (Other)
  Sender: TEVA
  Company Number: US-TEVA-VS-3274968

PATIENT
  Age: 79 Year
  Sex: Female

DRUGS (1)
  1. AUSTEDO XR [Suspect]
     Active Substance: DEUTETRABENAZINE
     Indication: Dyskinesia
     Route: 048

REACTIONS (6)
  - Diabetes mellitus [Not Recovered/Not Resolved]
  - Fracture [Not Recovered/Not Resolved]
  - Back pain [Recovering/Resolving]
  - Loss of personal independence in daily activities [Not Recovered/Not Resolved]
  - Fatigue [Not Recovered/Not Resolved]
  - Product supply issue [Unknown]
